FAERS Safety Report 12561716 (Version 1)
Quarter: 2016Q3

REPORT INFORMATION
  Report Type: Spontaneous
  Country: US (occurrence: US)
  Receive Date: 20160715
  Receipt Date: 20160715
  Transmission Date: 20161109
  Serious: No
  Sender: FDA-Public Use
  Company Number: US-TARO-2015TAR00751

PATIENT
  Age: 74 Year
  Sex: Female
  Weight: 74.83 kg

DRUGS (3)
  1. UNSPECIFIED THYROID MEDICINE [Concomitant]
  2. CLOTRIMAZOLE/BETAMETHASONE DIPROPIONATE CREAM USP 1%/0.05% [Suspect]
     Active Substance: BETAMETHASONE DIPROPIONATE\CLOTRIMAZOLE
     Indication: DERMATITIS DIAPER
     Dosage: APPLIED LIBERALLY AROUND VAGINA AND INSIDE, TWICE DAILY
     Route: 061
     Dates: start: 20150806, end: 20150809
  3. PREDNISONE. [Concomitant]
     Active Substance: PREDNISONE
     Dosage: UNK MG, UNK
     Dates: end: 20150807

REACTIONS (4)
  - Rash erythematous [Not Recovered/Not Resolved]
  - Skin exfoliation [Not Recovered/Not Resolved]
  - Pruritus [Not Recovered/Not Resolved]
  - Product use issue [Recovered/Resolved]

NARRATIVE: CASE EVENT DATE: 201508
